FAERS Safety Report 4420113-8 (Version None)
Quarter: 2004Q3

REPORT INFORMATION
  Report Type: 
  Country: None (occurrence: None)
  Receive Date: 20040809
  Receipt Date: 20040322
  Transmission Date: 20050211
  Serious: No
  Sender: FDA-Public Use
  Company Number: US-GLAXOSMITHKLINE-A0503813A

PATIENT
  Age: 59 Year
  Sex: Female

DRUGS (5)
  1. PAXIL [Suspect]
     Indication: ILL-DEFINED DISORDER
     Dosage: 20MG VARIABLE DOSE
     Route: 048
  2. IMITREX [Concomitant]
  3. ZESTRIL [Concomitant]
  4. DITROPAN XL [Concomitant]
  5. EVISTA [Concomitant]

REACTIONS (5)
  - HEADACHE [None]
  - ILL-DEFINED DISORDER [None]
  - INSOMNIA [None]
  - PARAESTHESIA [None]
  - SENSITIVITY OF TEETH [None]
